FAERS Safety Report 14935402 (Version 2)
Quarter: 2018Q2

REPORT INFORMATION
  Report Type: Spontaneous
  Country: US (occurrence: US)
  Receive Date: 20180524
  Receipt Date: 20180626
  Transmission Date: 20180711
  Serious: Yes (Death, Hospitalization, Other)
  Sender: FDA-Public Use
  Company Number: US-JAZZ-2018-US-007009

PATIENT
  Age: 53 Year
  Sex: Female

DRUGS (2)
  1. VYXEOS [Suspect]
     Active Substance: CYTARABINE\DAUNORUBICIN
     Dosage: TWO DOSES EVERY OTHER DAY
     Dates: start: 2018
  2. VYXEOS [Suspect]
     Active Substance: CYTARABINE\DAUNORUBICIN
     Indication: ACUTE MYELOID LEUKAEMIA
     Dosage: THREE DOSES EVERY OTHER DAY
     Dates: start: 201801

REACTIONS (3)
  - Neutropenia [Unknown]
  - Sepsis [Unknown]
  - Aspergillus infection [Fatal]

NARRATIVE: CASE EVENT DATE: 2018
